FAERS Safety Report 23351121 (Version 1)
Quarter: 2023Q4

REPORT INFORMATION
  Report Type: Spontaneous
  Country: US (occurrence: None)
  Receive Date: 20231228
  Receipt Date: 20231228
  Transmission Date: 20240110
  Serious: No
  Sender: FDA-Public Use
  Company Number: None

PATIENT
  Age: 53 Year
  Sex: Male

DRUGS (1)
  1. STIVARGA [Suspect]
     Active Substance: REGORAFENIB
     Indication: Rectal cancer
     Dosage: FREQUENCY : DAILY;?
     Route: 048
     Dates: start: 20231114

REACTIONS (5)
  - Stomatitis [None]
  - Hypophagia [None]
  - Fatigue [None]
  - Loss of personal independence in daily activities [None]
  - Oral mucosal erythema [None]

NARRATIVE: CASE EVENT DATE: 20231227
